FAERS Safety Report 4406779-7 (Version None)
Quarter: 2004Q3

REPORT INFORMATION
  Report Type: 
  Country: None (occurrence: None)
  Receive Date: 20040715
  Receipt Date: 20040709
  Transmission Date: 20050211
  Serious: Yes (Hospitalization, Disabling, Other)
  Sender: FDA-Public Use
  Company Number: 2004EU001228

PATIENT
  Age: 15 Year
  Sex: Female
  Weight: 42 kg

DRUGS (10)
  1. PROGRAF [Suspect]
     Indication: RENAL TRANSPLANT
     Dosage: 12.00 MG, UID/QD, ORAL; SEE IMAGE
     Route: 048
     Dates: end: 20040626
  2. PROGRAF [Suspect]
     Indication: RENAL TRANSPLANT
     Dosage: 12.00 MG, UID/QD, ORAL; SEE IMAGE
     Route: 048
     Dates: start: 20030908
  3. PREDNISONE TAB [Suspect]
     Dosage: 60.00 MG, UID/QD, ORAL; SEE IMAGE
     Route: 048
     Dates: start: 20040419, end: 20040510
  4. PREDNISONE TAB [Suspect]
     Dosage: 60.00 MG, UID/QD, ORAL; SEE IMAGE
     Route: 048
     Dates: start: 20030818
  5. CELLCEPT [Concomitant]
  6. ATORVASTATIN CALCIUM [Concomitant]
  7. ADALAT [Concomitant]
  8. NIFEDIPINE [Concomitant]
  9. SODIUM BICARBONATE IN PLASTIC CONTAINER [Concomitant]
  10. CYCLOSPORINE [Concomitant]

REACTIONS (3)
  - DISEASE RECURRENCE [None]
  - GLAUCOMA [None]
  - RENAL TUBULAR ACIDOSIS [None]
